FAERS Safety Report 12266998 (Version 1)
Quarter: 2016Q2

REPORT INFORMATION
  Report Type: Spontaneous
  Country: US (occurrence: US)
  Receive Date: 20160414
  Receipt Date: 20160414
  Transmission Date: 20160815
  Serious: No
  Sender: FDA-Public Use
  Company Number: US-PFIZER INC-2016162941

PATIENT
  Age: 63 Year
  Sex: Female

DRUGS (17)
  1. LASIX [Concomitant]
     Active Substance: FUROSEMIDE
     Dosage: 40 MG, 1X/DAY (PRN)
     Route: 048
  2. CLONIDINE. [Concomitant]
     Active Substance: CLONIDINE
     Dosage: 0.3 MG, WEEKLY
     Route: 061
  3. PREDNISONE. [Concomitant]
     Active Substance: PREDNISONE
     Dosage: 5 MG, 1X/DAY
     Route: 048
  4. RAPAMUNE [Suspect]
     Active Substance: SIROLIMUS
     Dosage: 1 MG, 1X/DAY
     Route: 048
  5. SENOKOT [Concomitant]
     Active Substance: SENNOSIDES
     Dosage: 8.6 MG, AS NEEDED
     Route: 048
  6. WARFARIN [Concomitant]
     Active Substance: WARFARIN
     Dosage: 2.5 MG, 1X/DAY (5MG ? TAB(S))
     Route: 048
  7. BACTRIM [Concomitant]
     Active Substance: SULFAMETHOXAZOLE\TRIMETHOPRIM
     Dosage: 1 DF, 1X/DAY (SULFAMETHOXAZOLE 400 MG -TRIMETHOPRIM 80 MG)
     Route: 048
  8. HUMALOG [Concomitant]
     Active Substance: INSULIN LISPRO
     Dosage: 12 IU, UNK (100 UNITS/ML)
     Route: 058
  9. LANTUS [Concomitant]
     Active Substance: INSULIN GLARGINE
     Dosage: 62 IU, UNK (100 UNITS/ML, QHS)
     Route: 058
  10. ASPIRIN 81 [Concomitant]
     Active Substance: ASPIRIN
     Dosage: 81 MG, 1X/DAY
     Route: 048
  11. RAPAMUNE [Suspect]
     Active Substance: SIROLIMUS
     Dosage: 0.5 MG, 1X/DAY
     Route: 048
  12. MYFORTIC [Concomitant]
     Active Substance: MYCOPHENOLATE SODIUM
     Dosage: 360 MG, 2X/DAY
     Route: 048
  13. METOPROLOL SUCCINATE. [Concomitant]
     Active Substance: METOPROLOL SUCCINATE
     Dosage: 100 ML, 1X/DAY
     Route: 048
  14. LEVONOX [Concomitant]
     Active Substance: ENOXAPARIN
     Dosage: 90 MG, 2X/DAY (100MG/ML)
     Route: 058
  15. DILTIAZEM [Concomitant]
     Active Substance: DILTIAZEM
     Dosage: 360 MG, 1X/DAY
     Route: 048
  16. HYDROCHLOROTHIAZIDE W/LOSARTAN [Concomitant]
     Active Substance: HYDROCHLOROTHIAZIDE\LOSARTAN
     Dosage: 1 DF, 1X/DAY (HYDROCHLOROTHIAZIDE 100MG -LOSARTAN 25MG)
     Route: 048
  17. ZETIA [Concomitant]
     Active Substance: EZETIMIBE
     Dosage: 10 MG, 1X/DAY
     Route: 048

REACTIONS (2)
  - Product use issue [Unknown]
  - Blood triglycerides increased [Unknown]
